FAERS Safety Report 26170185 (Version 2)
Quarter: 2025Q4

REPORT INFORMATION
  Report Type: Spontaneous
  Country: None (occurrence: GB)
  Receive Date: 20251217
  Receipt Date: 20251221
  Transmission Date: 20260118
  Serious: No
  Sender: TG THERAPEUTICS
  Company Number: GB-TG THERAPEUTICS INC.-TGT006770

PATIENT
  Age: 58 Year

DRUGS (2)
  1. BRIUMVI [Suspect]
     Active Substance: UBLITUXIMAB-XIIY
     Indication: Relapsing-remitting multiple sclerosis
     Dosage: UNK
  2. BRIUMVI [Suspect]
     Active Substance: UBLITUXIMAB-XIIY
     Dosage: 450 MILLIGRAM

REACTIONS (2)
  - Oral herpes [Unknown]
  - Infusion related reaction [Recovered/Resolved]
